FAERS Safety Report 6818219-9 (Version None)
Quarter: 2010Q3

REPORT INFORMATION
  Report Type: 
  Country: None (occurrence: None)
  Receive Date: 20100706
  Receipt Date: 20070314
  Transmission Date: 20110219
  Serious: No
  Sender: FDA-Public Use
  Company Number: US-PFIZER INC-2007023495

PATIENT
  Sex: Female
  Weight: 56.7 kg

DRUGS (7)
  1. AZITHROMYCIN [Suspect]
     Indication: COUGH
     Route: 048
     Dates: start: 20070227, end: 20070302
  2. ZITHROMAX [Suspect]
     Indication: COUGH
     Route: 048
     Dates: start: 20060301
  3. AMOXICILLIN [Concomitant]
     Indication: PROPHYLAXIS
  4. CENTRUM [Concomitant]
  5. VITAMIN B-12 [Concomitant]
  6. VITAMIN E [Concomitant]
  7. VIACTIV /USA/ [Concomitant]

REACTIONS (3)
  - DIARRHOEA [None]
  - HYPOAESTHESIA [None]
  - WEIGHT DECREASED [None]
